FAERS Safety Report 9135301 (Version 1)
Quarter: 2013Q1

REPORT INFORMATION
  Report Type: Spontaneous
  Country: US (occurrence: US)
  Receive Date: 20130304
  Receipt Date: 20130304
  Transmission Date: 20140127
  Serious: No
  Sender: FDA-Public Use
  Company Number: US-ENDO PHARMACEUTICALS INC.-ENDC20110085

PATIENT
  Sex: Male
  Weight: 92.62 kg

DRUGS (2)
  1. ENDOCET [Suspect]
     Indication: PAIN
     Dosage: 30/975 MG
     Route: 048
  2. ENDOCET [Suspect]
     Dosage: 60MG/1950MG
     Route: 048
     Dates: start: 201007

REACTIONS (1)
  - Muscle spasms [Recovering/Resolving]
